FAERS Safety Report 9669348 (Version 1)
Quarter: 2013Q4

REPORT INFORMATION
  Report Type: Spontaneous
  Country: NL (occurrence: NL)
  Receive Date: 20131105
  Receipt Date: 20131105
  Transmission Date: 20140711
  Serious: Yes (Hospitalization)
  Sender: FDA-Public Use
  Company Number: NL-AMGEN-NLDSP2013077389

PATIENT
  Age: 77 Year
  Sex: Female

DRUGS (2)
  1. ARANESP [Suspect]
     Indication: PRODUCT USED FOR UNKNOWN INDICATION
     Dosage: 500 MUG, Q3WK
     Route: 058
     Dates: start: 20131010, end: 20131030
  2. XGEVA [Concomitant]

REACTIONS (1)
  - Transfusion [Unknown]
